FAERS Safety Report 16281946 (Version 2)
Quarter: 2019Q2

REPORT INFORMATION
  Report Type: Spontaneous
  Country: CO (occurrence: CO)
  Receive Date: 20190507
  Receipt Date: 20190510
  Transmission Date: 20190711
  Serious: Yes (Death, Other)
  Sender: FDA-Public Use
  Company Number: CO-AMGEN-COLSP2019069429

PATIENT
  Sex: Female

DRUGS (1)
  1. BLINCYTO [Suspect]
     Active Substance: BLINATUMOMAB
     Indication: ACUTE LYMPHOCYTIC LEUKAEMIA
     Dosage: UNK
     Route: 065

REACTIONS (3)
  - Disease complication [Unknown]
  - Acute lymphocytic leukaemia [Unknown]
  - Pneumonia [Fatal]
